FAERS Safety Report 22359122 (Version 1)
Quarter: 2023Q2

REPORT INFORMATION
  Report Type: Spontaneous
  Country: US (occurrence: US)
  Receive Date: 20230524
  Receipt Date: 20230524
  Transmission Date: 20230721
  Serious: Yes (Other)
  Sender: FDA-Public Use
  Company Number: US-UCBSA-2023002709

PATIENT
  Age: 30 Year
  Sex: Female

DRUGS (4)
  1. CIMZIA [Suspect]
     Active Substance: CERTOLIZUMAB PEGOL
     Indication: Rheumatoid arthritis
     Dosage: 200 MILLIGRAM, EV 2 WEEKS(QOW)
     Route: 058
     Dates: end: 202212
  2. CHLOROPHYLL [Concomitant]
     Indication: Product used for unknown indication
     Dosage: 20-100 MILLIGRAM
  3. MINERALS\VITAMINS [Concomitant]
     Active Substance: MINERALS\VITAMINS
     Indication: Product used for unknown indication
     Dosage: 500 MILLIGRAM CHEW
  4. ISOTRETINOIN [Concomitant]
     Active Substance: ISOTRETINOIN
     Indication: Product used for unknown indication
     Dosage: 30 MILLIGRAM

REACTIONS (7)
  - Rheumatoid arthritis [Not Recovered/Not Resolved]
  - Respiratory tract congestion [Recovered/Resolved]
  - Respiratory disorder [Recovered/Resolved]
  - Influenza [Recovered/Resolved]
  - Rash [Unknown]
  - Sinusitis [Recovered/Resolved]
  - COVID-19 [Recovered/Resolved]

NARRATIVE: CASE EVENT DATE: 20221001
